FAERS Safety Report 11754829 (Version 1)
Quarter: 2015Q4

REPORT INFORMATION
  Report Type: Report from Study
  Country: US (occurrence: US)
  Receive Date: 20151119
  Receipt Date: 20151119
  Transmission Date: 20160304
  Serious: Yes (Other)
  Sender: FDA-Public Use
  Company Number: US-ABBVIE-15K-163-1500976-00

PATIENT
  Age: 58 Year
  Sex: Female

DRUGS (11)
  1. MOBIC [Concomitant]
     Active Substance: MELOXICAM
     Indication: PRODUCT USED FOR UNKNOWN INDICATION
     Dates: start: 20080812
  2. EFFEXOR [Concomitant]
     Active Substance: VENLAFAXINE HYDROCHLORIDE
     Indication: PRODUCT USED FOR UNKNOWN INDICATION
     Dates: start: 20080812
  3. SULINDAC. [Concomitant]
     Active Substance: SULINDAC
     Indication: PRODUCT USED FOR UNKNOWN INDICATION
     Dates: end: 20121227
  4. HUMIRA [Suspect]
     Active Substance: ADALIMUMAB
     Indication: RHEUMATOID ARTHRITIS
     Route: 058
     Dates: start: 20080905, end: 20151013
  5. TYLENOL [Concomitant]
     Active Substance: ACETAMINOPHEN
     Indication: PRODUCT USED FOR UNKNOWN INDICATION
     Dates: start: 20080812
  6. METHOTREXATE [Concomitant]
     Active Substance: METHOTREXATE
     Dates: start: 201511
  7. FOLIC ACID. [Concomitant]
     Active Substance: FOLIC ACID
     Indication: PRODUCT USED FOR UNKNOWN INDICATION
     Dates: start: 20080812
  8. CEFDINIR. [Concomitant]
     Active Substance: CEFDINIR
     Indication: PRODUCT USED FOR UNKNOWN INDICATION
     Dates: start: 20080812
  9. HUMIRA [Suspect]
     Active Substance: ADALIMUMAB
     Route: 058
     Dates: start: 20151115
  10. TYLENOL WITH CODEIN #4 [Concomitant]
     Indication: PRODUCT USED FOR UNKNOWN INDICATION
     Dates: start: 20080812
  11. METHOTREXATE [Concomitant]
     Active Substance: METHOTREXATE
     Indication: RHEUMATOID ARTHRITIS
     Dates: start: 2007, end: 201510

REACTIONS (6)
  - Arthralgia [Recovered/Resolved]
  - Femoroacetabular impingement [Recovered/Resolved]
  - Rash [Recovering/Resolving]
  - Arthralgia [Recovering/Resolving]
  - Cartilage injury [Unknown]
  - Femoroacetabular impingement [Recovering/Resolving]

NARRATIVE: CASE EVENT DATE: 2011
